FAERS Safety Report 6291332-3 (Version None)
Quarter: 2009Q2

REPORT INFORMATION
  Report Type: 
  Country: None (occurrence: None)
  Receive Date: 20090615
  Receipt Date: 20090615
  Transmission Date: 20091009
  Serious: No
  Sender: FDA-Public Use
  Company Number: None

PATIENT
  Sex: Female
  Weight: 54.4316 kg

DRUGS (1)
  1. CALCITRIOL [Suspect]
     Indication: THYROID OPERATION
     Dosage: ONE CAPSULE, 2 X DAILY, 047
     Dates: start: 20090511

REACTIONS (5)
  - AGGRESSION [None]
  - DIZZINESS [None]
  - HEADACHE [None]
  - MUSCLE SPASMS [None]
  - NAUSEA [None]
